FAERS Safety Report 22219664 (Version 1)
Quarter: 2023Q2

REPORT INFORMATION
  Report Type: Spontaneous
  Country: IT (occurrence: IT)
  Receive Date: 20230417
  Receipt Date: 20230417
  Transmission Date: 20230721
  Serious: Yes (Other)
  Sender: FDA-Public Use
  Company Number: None

PATIENT
  Age: 76 Year
  Sex: Male
  Weight: 57 kg

DRUGS (3)
  1. OXALIPLATIN [Suspect]
     Active Substance: OXALIPLATIN
     Indication: Pancreatic carcinoma
     Dosage: 135 MG (14 DAYS) 135 MG OGNI 14 GIORNI.
     Route: 042
     Dates: start: 20221021
  2. IRINOTECAN [Suspect]
     Active Substance: IRINOTECAN
     Indication: Pancreatic carcinoma
     Dosage: 155 MG (14 DAYS) 155 MG OGNI 14 GIORNI.
     Route: 042
     Dates: start: 20221021
  3. FLUOROURACIL [Suspect]
     Active Substance: FLUOROURACIL
     Indication: Pancreatic carcinoma
     Dosage: 3900 MG (14 DAYS) 3900 MG OGNI 14 GIORNI.
     Route: 042
     Dates: start: 20221021

REACTIONS (4)
  - Neurotoxicity [Not Recovered/Not Resolved]
  - Glossitis [Recovering/Resolving]
  - Paraesthesia [Not Recovered/Not Resolved]
  - Dysgeusia [Not Recovered/Not Resolved]

NARRATIVE: CASE EVENT DATE: 20221101
